FAERS Safety Report 6100606-8 (Version None)
Quarter: 2009Q1

REPORT INFORMATION
  Report Type: 
  Country: None (occurrence: None)
  Receive Date: 20090303
  Receipt Date: 20090218
  Transmission Date: 20090719
  Serious: Yes (Hospitalization, Other)
  Sender: FDA-Public Use
  Company Number: AR-NOVOPROD-275791

PATIENT
  Age: 25 Year
  Sex: Female
  Weight: 48 kg

DRUGS (4)
  1. LEVEMIR [Suspect]
     Indication: TYPE 1 DIABETES MELLITUS
     Dosage: 30 IU, QD
     Route: 058
     Dates: start: 20070701, end: 20080527
  2. INSULIN LISPRO [Suspect]
     Indication: TYPE 1 DIABETES MELLITUS
     Dosage: 1 U, QD
     Dates: end: 20080524
  3. INSULATARD [Suspect]
     Indication: TYPE 1 DIABETES MELLITUS
     Dates: start: 20080527
  4. ACTRAPID HM PENFILL [Suspect]
     Indication: TYPE 1 DIABETES MELLITUS
     Dates: start: 20080527

REACTIONS (6)
  - ANAEMIA [None]
  - HYPERGLYCAEMIA [None]
  - HYPOTHYROIDISM [None]
  - OLIGOHYDRAMNIOS [None]
  - PRE-ECLAMPSIA [None]
  - PREGNANCY [None]
